FAERS Safety Report 8434034-7 (Version None)
Quarter: 2012Q2

REPORT INFORMATION
  Report Type: 
  Country: None (occurrence: None)
  Receive Date: 20120323
  Receipt Date: 20110715
  Transmission Date: 20120825
  Serious: Yes (Other)
  Sender: FDA-Public Use
  Company Number: 163-21880-11072083

PATIENT
  Age: 53 Year
  Sex: Male

DRUGS (5)
  1. VELCADE [Concomitant]
  2. REVLIMID [Suspect]
     Indication: MULTIPLE MYELOMA
     Dosage: 25 MG, DAILY X 14 DAYS, PO, 25 MG, DAILY X 14 DAYS, PO
     Route: 048
     Dates: start: 20110624, end: 20110711
  3. REVLIMID [Suspect]
     Indication: MULTIPLE MYELOMA
     Dosage: 25 MG, DAILY X 14 DAYS, PO, 25 MG, DAILY X 14 DAYS, PO
     Route: 048
     Dates: start: 20110718
  4. DEXAMETHASONE [Concomitant]
  5. ASPIRIN [Concomitant]

REACTIONS (3)
  - RASH ERYTHEMATOUS [None]
  - RASH GENERALISED [None]
  - RASH PRURITIC [None]
